FAERS Safety Report 22104156 (Version 1)
Quarter: 2023Q1

REPORT INFORMATION
  Report Type: Spontaneous
  Country: GB (occurrence: GB)
  Receive Date: 20230316
  Receipt Date: 20230316
  Transmission Date: 20230417
  Serious: Yes (Life-Threatening, Other)
  Sender: FDA-Public Use
  Company Number: GB-JNJFOC-20230333911

PATIENT
  Age: 73 Year
  Sex: Female

DRUGS (1)
  1. YONDELIS [Suspect]
     Active Substance: TRABECTEDIN
     Indication: Synovial sarcoma metastatic
     Route: 042
     Dates: start: 202010

REACTIONS (6)
  - Atrial fibrillation [Recovering/Resolving]
  - Dyspnoea [Not Recovered/Not Resolved]
  - Left ventricular dysfunction [Recovering/Resolving]
  - Left ventricular dilatation [Not Recovered/Not Resolved]
  - Left atrial dilatation [Unknown]
  - Mitral valve incompetence [Unknown]
